FAERS Safety Report 13602870 (Version 2)
Quarter: 2017Q3

REPORT INFORMATION
  Report Type: Spontaneous
  Country: BR (occurrence: BR)
  Receive Date: 20170601
  Receipt Date: 20170714
  Transmission Date: 20171127
  Serious: Yes (Hospitalization, Other)
  Sender: FDA-Public Use
  Company Number: BR-009507513-1705BRA013844

PATIENT
  Age: 28 Year
  Sex: Female
  Weight: 60 kg

DRUGS (1)
  1. IMPLANON [Suspect]
     Active Substance: ETONOGESTREL
     Indication: CONTRACEPTION
     Dosage: IMPLANT, THE UPPER AND INNER ARM
     Route: 059
     Dates: start: 2004

REACTIONS (5)
  - Thyroid mass [Not Recovered/Not Resolved]
  - Limb discomfort [Unknown]
  - Benign neoplasm of spinal cord [Recovered/Resolved with Sequelae]
  - Incorrect drug administration duration [Unknown]
  - Pain in extremity [Unknown]

NARRATIVE: CASE EVENT DATE: 2007
